FAERS Safety Report 17717363 (Version 2)
Quarter: 2020Q2

REPORT INFORMATION
  Report Type: Spontaneous
  Country: US (occurrence: US)
  Receive Date: 20200428
  Receipt Date: 20200601
  Transmission Date: 20200714
  Serious: No
  Sender: FDA-Public Use
  Company Number: US-PFIZER INC-2020167020

PATIENT
  Age: 64 Year
  Sex: Female

DRUGS (2)
  1. XELJANZ [Suspect]
     Active Substance: TOFACITINIB CITRATE
     Dosage: 5 MG, DAILY (SOMETIMES TAKES ONE TABLET A DAY INSTEAD OF 2 TABLETS A DAY)
     Route: 048
  2. XELJANZ [Suspect]
     Active Substance: TOFACITINIB CITRATE
     Indication: RHEUMATOID ARTHRITIS
     Dosage: 5 MG, 2X/DAY
     Route: 048
     Dates: start: 20190501, end: 2019

REACTIONS (7)
  - Eye pain [Recovering/Resolving]
  - Drug ineffective [Unknown]
  - Migraine [Unknown]
  - Vitreous floaters [Recovering/Resolving]
  - Intentional product use issue [Unknown]
  - Eye disorder [Recovering/Resolving]
  - Photopsia [Recovering/Resolving]

NARRATIVE: CASE EVENT DATE: 20190620
